FAERS Safety Report 5275683-7 (Version None)
Quarter: 2007Q1

REPORT INFORMATION
  Report Type: 
  Country: None (occurrence: None)
  Receive Date: 20061213
  Receipt Date: 20040405
  Transmission Date: 20070707
  Serious: No
  Sender: FDA-Public Use
  Company Number: 2004UW06834

PATIENT
  Age: 49 Year
  Sex: Male

DRUGS (2)
  1. SEROQUEL [Suspect]
     Dosage: 200 MG IN MORNING,  400 MG IN EVENING
  2. NEXIUM [Concomitant]

REACTIONS (1)
  - CEREBRAL ARTERY OCCLUSION [None]
